FAERS Safety Report 24995201 (Version 5)
Quarter: 2025Q2

REPORT INFORMATION
  Report Type: Spontaneous
  Country: CN (occurrence: CN)
  Receive Date: 20250221
  Receipt Date: 20250625
  Transmission Date: 20250717
  Serious: Yes (Hospitalization, Other)
  Sender: PFIZER
  Company Number: CN-PFIZER INC-PV202300136008

PATIENT
  Age: 24 Year
  Sex: Male

DRUGS (42)
  1. XYNTHA [Suspect]
     Active Substance: MOROCTOCOG ALFA
     Indication: Factor VIII deficiency
     Dates: start: 20230515
  2. XYNTHA [Suspect]
     Active Substance: MOROCTOCOG ALFA
     Dosage: 500 IU, 1X/DAY
     Route: 040
     Dates: start: 20230804
  3. XYNTHA [Suspect]
     Active Substance: MOROCTOCOG ALFA
     Dosage: 1000IU BIW
     Route: 040
     Dates: start: 20231026
  4. XYNTHA [Suspect]
     Active Substance: MOROCTOCOG ALFA
     Route: 042
     Dates: start: 20231109
  5. XYNTHA [Suspect]
     Active Substance: MOROCTOCOG ALFA
     Route: 042
     Dates: start: 20231110
  6. XYNTHA [Suspect]
     Active Substance: MOROCTOCOG ALFA
     Route: 042
     Dates: start: 20231110
  7. XYNTHA [Suspect]
     Active Substance: MOROCTOCOG ALFA
     Route: 042
     Dates: start: 20231111
  8. XYNTHA [Suspect]
     Active Substance: MOROCTOCOG ALFA
     Route: 042
     Dates: start: 20231111
  9. XYNTHA [Suspect]
     Active Substance: MOROCTOCOG ALFA
     Dosage: 1000IUBID
     Route: 042
     Dates: start: 20231112
  10. XYNTHA [Suspect]
     Active Substance: MOROCTOCOG ALFA
     Route: 042
     Dates: start: 20231112
  11. XYNTHA [Suspect]
     Active Substance: MOROCTOCOG ALFA
     Dosage: 500IUQD
     Route: 040
     Dates: start: 20231128
  12. XYNTHA [Suspect]
     Active Substance: MOROCTOCOG ALFA
     Dosage: 1000IUQD
     Route: 040
     Dates: start: 20240104
  13. XYNTHA [Suspect]
     Active Substance: MOROCTOCOG ALFA
     Dosage: 1000IUQD
     Route: 040
     Dates: start: 20240208
  14. XYNTHA [Suspect]
     Active Substance: MOROCTOCOG ALFA
     Dosage: 1000IUQD
     Route: 040
     Dates: start: 20240311
  15. XYNTHA [Suspect]
     Active Substance: MOROCTOCOG ALFA
     Dosage: 1000IUQD
     Route: 040
     Dates: start: 20240412
  16. XYNTHA [Suspect]
     Active Substance: MOROCTOCOG ALFA
     Dosage: 1000IUQD
     Route: 040
     Dates: start: 20240508
  17. XYNTHA [Suspect]
     Active Substance: MOROCTOCOG ALFA
     Route: 042
     Dates: start: 20240510
  18. XYNTHA [Suspect]
     Active Substance: MOROCTOCOG ALFA
     Route: 042
     Dates: start: 20240510
  19. XYNTHA [Suspect]
     Active Substance: MOROCTOCOG ALFA
     Route: 042
     Dates: start: 20240511
  20. XYNTHA [Suspect]
     Active Substance: MOROCTOCOG ALFA
     Route: 042
     Dates: start: 20240512
  21. XYNTHA [Suspect]
     Active Substance: MOROCTOCOG ALFA
     Dosage: 1000IUQD
     Route: 042
     Dates: start: 20240513
  22. XYNTHA [Suspect]
     Active Substance: MOROCTOCOG ALFA
     Dosage: 2000IUQD
     Route: 042
     Dates: start: 20240513
  23. XYNTHA [Suspect]
     Active Substance: MOROCTOCOG ALFA
     Route: 042
     Dates: start: 20240513
  24. XYNTHA [Suspect]
     Active Substance: MOROCTOCOG ALFA
     Dosage: 2000IUQD
     Route: 040
     Dates: start: 20240620
  25. XYNTHA [Suspect]
     Active Substance: MOROCTOCOG ALFA
     Dosage: 2000IUQD
     Route: 042
     Dates: start: 20240722
  26. XYNTHA [Suspect]
     Active Substance: MOROCTOCOG ALFA
     Dosage: 1000IUQD
     Route: 040
     Dates: start: 20240923
  27. XYNTHA [Suspect]
     Active Substance: MOROCTOCOG ALFA
     Route: 040
     Dates: start: 20241030
  28. XYNTHA [Suspect]
     Active Substance: MOROCTOCOG ALFA
     Dosage: 1000IUQD
     Route: 040
     Dates: start: 20241126
  29. XYNTHA [Suspect]
     Active Substance: MOROCTOCOG ALFA
     Route: 042
     Dates: start: 20241128
  30. XYNTHA [Suspect]
     Active Substance: MOROCTOCOG ALFA
     Route: 042
     Dates: start: 20241129
  31. XYNTHA [Suspect]
     Active Substance: MOROCTOCOG ALFA
     Route: 042
     Dates: start: 20241130
  32. XYNTHA [Suspect]
     Active Substance: MOROCTOCOG ALFA
     Route: 042
     Dates: start: 20241130
  33. XYNTHA [Suspect]
     Active Substance: MOROCTOCOG ALFA
     Dosage: 2000IUBID
     Route: 042
     Dates: start: 20241130
  34. XYNTHA [Suspect]
     Active Substance: MOROCTOCOG ALFA
     Dosage: 1000IUQD
     Route: 040
     Dates: start: 20241225
  35. XYNTHA [Suspect]
     Active Substance: MOROCTOCOG ALFA
     Dosage: 1000IUQD
     Route: 040
     Dates: start: 20241230
  36. XYNTHA [Suspect]
     Active Substance: MOROCTOCOG ALFA
     Dosage: 1000IUQD
     Route: 040
     Dates: start: 20250121
  37. XYNTHA [Suspect]
     Active Substance: MOROCTOCOG ALFA
     Dosage: 1000IUQD
     Route: 040
     Dates: start: 20250214
  38. XYNTHA [Suspect]
     Active Substance: MOROCTOCOG ALFA
     Dosage: 1000IUQD
     Route: 040
     Dates: start: 20250217
  39. XYNTHA [Suspect]
     Active Substance: MOROCTOCOG ALFA
     Dosage: 1000IUQD
     Route: 040
     Dates: start: 20250328
  40. XYNTHA [Suspect]
     Active Substance: MOROCTOCOG ALFA
     Dosage: 1000IUQD
     Route: 040
     Dates: start: 20250331
  41. XYNTHA [Suspect]
     Active Substance: MOROCTOCOG ALFA
     Dosage: 1000IUQD
     Route: 040
     Dates: start: 20250422
  42. XYNTHA [Suspect]
     Active Substance: MOROCTOCOG ALFA
     Indication: Factor VIII deficiency
     Dosage: 1000 IU, 1X/DAY
     Route: 048
     Dates: start: 20250620

REACTIONS (5)
  - Joint stiffness [Unknown]
  - Tenotomy [Unknown]
  - Knee arthroplasty [Unknown]
  - Product prescribing error [Unknown]
  - Off label use [Unknown]

NARRATIVE: CASE EVENT DATE: 20230804
